FAERS Safety Report 24621996 (Version 1)
Quarter: 2024Q4

REPORT INFORMATION
  Report Type: Report from Study
  Country: CA (occurrence: CA)
  Receive Date: 20241114
  Receipt Date: 20241114
  Transmission Date: 20250115
  Serious: Yes (Hospitalization, Other)
  Sender: HLS THERAPEUTICS
  Company Number: CA-HLS-202108827

PATIENT
  Age: 20 Year
  Sex: Male

DRUGS (4)
  1. CLOZARIL [Suspect]
     Active Substance: CLOZAPINE
     Indication: Product used for unknown indication
     Route: 048
     Dates: end: 20211115
  2. MELATONIN [Concomitant]
     Active Substance: MELATONIN
     Indication: Product used for unknown indication
     Dosage: 90 MG
     Route: 048
  3. SERTRALINE [Concomitant]
     Active Substance: SERTRALINE HYDROCHLORIDE
     Indication: Product used for unknown indication
     Dosage: 100 MG
     Route: 048
  4. LAMOTRIGINE [Concomitant]
     Active Substance: LAMOTRIGINE
     Indication: Product used for unknown indication
     Dosage: 200 MG
     Route: 048

REACTIONS (10)
  - Anxiety [Recovering/Resolving]
  - Hallucination, auditory [Recovering/Resolving]
  - Delusion [Unknown]
  - Blood pressure decreased [Unknown]
  - Myocarditis [Unknown]
  - Heart rate decreased [Unknown]
  - Left ventricular dysfunction [Unknown]
  - Electrocardiogram T wave abnormal [Unknown]
  - Paranoia [Not Recovered/Not Resolved]
  - Suicidal ideation [Unknown]

NARRATIVE: CASE EVENT DATE: 20211116
